FAERS Safety Report 10665055 (Version 1)
Quarter: 2014Q4

REPORT INFORMATION
  Report Type: Spontaneous
  Country: CA (occurrence: CA)
  Receive Date: 20141219
  Receipt Date: 20141219
  Transmission Date: 20150529
  Serious: Yes (Other)
  Sender: FDA-Public Use
  Company Number: CA-PFIZER INC-2014349081

PATIENT
  Age: 51 Year
  Sex: Male

DRUGS (2)
  1. MORPHINE SULFATE. [Suspect]
     Active Substance: MORPHINE SULFATE
     Indication: PAIN
     Dosage: UNK
     Route: 065
  2. HEROIN [Suspect]
     Active Substance: DIACETYLMORPHINE
     Dosage: UNK
     Route: 045

REACTIONS (6)
  - Depression [Unknown]
  - Psychomotor skills impaired [Unknown]
  - Suicidal ideation [Unknown]
  - Drug dependence [Unknown]
  - Substance abuse [Unknown]
  - Drug withdrawal syndrome [Unknown]
